FAERS Safety Report 6762263-7 (Version None)
Quarter: 2010Q2

REPORT INFORMATION
  Report Type: 
  Country: None (occurrence: None)
  Receive Date: 20100609
  Receipt Date: 20100603
  Transmission Date: 20101027
  Serious: Yes (Life-Threatening, Hospitalization)
  Sender: FDA-Public Use
  Company Number: FR-SANOFI-AVENTIS-2010SA032429

PATIENT
  Age: 73 Year
  Sex: Male

DRUGS (1)
  1. PLAVIX [Suspect]
     Route: 048

REACTIONS (5)
  - ANAEMIA [None]
  - HAEMATURIA [None]
  - PERFORATED ULCER [None]
  - ULCER HAEMORRHAGE [None]
  - URINARY BLADDER POLYP [None]
